FAERS Safety Report 7601011-5 (Version None)
Quarter: 2011Q3

REPORT INFORMATION
  Report Type: 
  Country: None (occurrence: None)
  Receive Date: 20110711
  Receipt Date: 20110705
  Transmission Date: 20111222
  Serious: Yes (Death, Hospitalization)
  Sender: FDA-Public Use
  Company Number: US-GLAXOSMITHKLINE-A0934938A

PATIENT
  Age: 78 Year
  Sex: Female

DRUGS (2)
  1. ADVAIR DISKUS 100/50 [Suspect]
     Indication: ASTHMA
     Dosage: 1PUFF PER DAY
     Route: 055
     Dates: end: 20110301
  2. CONCURRENT MEDICATIONS [Concomitant]

REACTIONS (5)
  - HYPERTENSION [None]
  - FALL [None]
  - CEREBROVASCULAR ACCIDENT [None]
  - DEATH [None]
  - HEART RATE INCREASED [None]
